FAERS Safety Report 4686947-X (Version None)
Quarter: 2005Q2

REPORT INFORMATION
  Report Type: 
  Country: None (occurrence: None)
  Receive Date: 20050608
  Receipt Date: 20050524
  Transmission Date: 20051028
  Serious: No
  Sender: FDA-Public Use
  Company Number: 11278

PATIENT
  Age: 78 Year
  Sex: Male

DRUGS (2)
  1. MITOMYCIN-C BULK POWDER [Suspect]
     Indication: MELANOSIS
     Dosage: EY
  2. ARTIFICIAL TEARS [Concomitant]

REACTIONS (2)
  - CONJUNCTIVAL HYPERAEMIA [None]
  - CORNEAL EROSION [None]
